FAERS Safety Report 6115547-X (Version None)
Quarter: 2009Q1

REPORT INFORMATION
  Report Type: 
  Country: None (occurrence: None)
  Receive Date: 20090313
  Receipt Date: 20090303
  Transmission Date: 20090719
  Serious: No
  Sender: FDA-Public Use
  Company Number: DE-ELI_LILLY_AND_COMPANY-DE200903001433

PATIENT
  Age: 60 Year
  Sex: Female

DRUGS (15)
  1. ZYPREXA [Suspect]
     Indication: SCHIZOAFFECTIVE DISORDER
     Dosage: 20 MG, UNK
     Route: 048
     Dates: start: 20080923, end: 20081002
  2. ZYPREXA [Suspect]
     Dosage: 15 MG, UNK
     Route: 048
     Dates: start: 20081003, end: 20081012
  3. ZYPREXA [Suspect]
     Dosage: 10 MG, UNK
     Route: 048
     Dates: start: 20081013, end: 20081015
  4. ZYPREXA [Suspect]
     Dosage: 7.5 MG, UNK
     Route: 048
     Dates: start: 20081016, end: 20081020
  5. HALDOL SOLUTAB [Concomitant]
     Dosage: 10 MG, UNK
     Route: 048
     Dates: start: 20080916, end: 20080923
  6. HALDOL SOLUTAB [Concomitant]
     Dosage: 4 MG, UNK
     Route: 048
     Dates: start: 20080924, end: 20080930
  7. DIAZEPAM [Concomitant]
     Dosage: 20 MG, UNK
     Route: 048
     Dates: start: 20080916, end: 20080924
  8. DIAZEPAM [Concomitant]
     Dosage: 15 MG, UNK
     Route: 048
     Dates: start: 20080925, end: 20080928
  9. LORAZEPAM [Concomitant]
     Dosage: 1.5 MG, UNK
     Route: 048
     Dates: start: 20080925, end: 20080930
  10. ERGENYL [Concomitant]
     Dosage: 1000 MG, UNK
     Route: 048
     Dates: start: 20080924, end: 20080926
  11. ERGENYL [Concomitant]
     Dosage: 1600 MG, UNK
     Route: 048
     Dates: start: 20080927, end: 20081001
  12. ERGENYL [Concomitant]
     Dates: start: 20081002
  13. SORTIS [Concomitant]
     Dosage: 20 MG, UNK
     Route: 048
  14. METOPROLOL SUCCINATE [Concomitant]
     Dosage: 47.5 MG, UNK
     Route: 048
  15. CLEXANE [Concomitant]
     Dosage: 20 IU, UNK
     Dates: start: 20080924, end: 20081005

REACTIONS (4)
  - DRUG INTERACTION [None]
  - FALL [None]
  - HAEMATOMA [None]
  - PARKINSONISM [None]
